FAERS Safety Report 11968496 (Version 2)
Quarter: 2016Q1

REPORT INFORMATION
  Report Type: Spontaneous
  Country: JP (occurrence: JP)
  Receive Date: 20160128
  Receipt Date: 20160325
  Transmission Date: 20160526
  Serious: Yes (Other)
  Sender: FDA-Public Use
  Company Number: JP-AMGEN-JPNSP2016008368

PATIENT
  Age: 72 Year
  Sex: Female

DRUGS (2)
  1. BONALON [Concomitant]
     Active Substance: ALENDRONATE SODIUM
     Dosage: UNK, ONCE EVERY 1 MO
     Route: 065
  2. PRALIA [Suspect]
     Active Substance: DENOSUMAB
     Indication: PRODUCT USED FOR UNKNOWN INDICATION
     Dosage: 60 MG, Q6MO
     Route: 023
     Dates: start: 201511

REACTIONS (1)
  - Osteomyelitis [Recovering/Resolving]

NARRATIVE: CASE EVENT DATE: 201601
